FAERS Safety Report 6522408-0 (Version None)
Quarter: 2009Q4

REPORT INFORMATION
  Report Type: 
  Country: None (occurrence: None)
  Receive Date: 20091229
  Receipt Date: 20091229
  Transmission Date: 20100525
  Serious: Yes (Other)
  Sender: FDA-Public Use
  Company Number: None

PATIENT
  Age: 40 Year
  Sex: Female
  Weight: 54.4316 kg

DRUGS (6)
  1. LEXAPRO [Suspect]
     Indication: ANGER
     Dosage: 10 MG 1/DAY SL; 5 MG 1/DAY SL
     Route: 060
     Dates: start: 20020415, end: 20090707
  2. LEXAPRO [Suspect]
     Indication: IMPATIENCE
     Dosage: 10 MG 1/DAY SL; 5 MG 1/DAY SL
     Route: 060
     Dates: start: 20020415, end: 20090707
  3. LEXAPRO [Suspect]
     Indication: PREMENSTRUAL SYNDROME
     Dosage: 10 MG 1/DAY SL; 5 MG 1/DAY SL
     Route: 060
     Dates: start: 20020415, end: 20090707
  4. LEXAPRO [Suspect]
     Indication: ANGER
     Dosage: 10 MG 1/DAY SL; 5 MG 1/DAY SL
     Route: 060
     Dates: start: 20090906, end: 20091107
  5. LEXAPRO [Suspect]
     Indication: IMPATIENCE
     Dosage: 10 MG 1/DAY SL; 5 MG 1/DAY SL
     Route: 060
     Dates: start: 20090906, end: 20091107
  6. LEXAPRO [Suspect]
     Indication: PREMENSTRUAL SYNDROME
     Dosage: 10 MG 1/DAY SL; 5 MG 1/DAY SL
     Route: 060
     Dates: start: 20090906, end: 20091107

REACTIONS (11)
  - ABNORMAL SENSATION IN EYE [None]
  - ADRENAL DISORDER [None]
  - ANXIETY [None]
  - BALANCE DISORDER [None]
  - DIZZINESS [None]
  - DYSKINESIA [None]
  - HYPERACUSIS [None]
  - INSOMNIA [None]
  - PANIC ATTACK [None]
  - PHOTOPHOBIA [None]
  - VISUAL IMPAIRMENT [None]
